FAERS Safety Report 21074557 (Version 1)
Quarter: 2022Q3

REPORT INFORMATION
  Report Type: Spontaneous
  Country: FR (occurrence: FR)
  Receive Date: 20220713
  Receipt Date: 20220713
  Transmission Date: 20221027
  Serious: Yes (Hospitalization, Other)
  Sender: FDA-Public Use
  Company Number: FR-AFSSAPS-GR20221486

PATIENT
  Age: 78 Year
  Sex: Male
  Weight: 83 kg

DRUGS (4)
  1. CLOPIDOGREL [Suspect]
     Active Substance: CLOPIDOGREL BISULFATE
     Indication: Acute coronary syndrome
     Dosage: 300 MILLIGRAM
     Route: 048
     Dates: start: 20220529, end: 20220602
  2. ASPIRIN [Suspect]
     Active Substance: ASPIRIN
     Indication: Acute coronary syndrome
     Dosage: (NP)
     Route: 048
     Dates: start: 20220529, end: 20220602
  3. ALTEPLASE [Suspect]
     Active Substance: ALTEPLASE
     Indication: Thrombolysis
     Dosage: NP
     Route: 042
     Dates: start: 20220529, end: 20220529
  4. LOVENOX [Suspect]
     Active Substance: ENOXAPARIN SODIUM
     Indication: Acute coronary syndrome
     Dosage: 6000 INTERNATIONAL UNIT
     Route: 048
     Dates: start: 20220529, end: 20220602

REACTIONS (1)
  - Cerebral haemorrhage [Not Recovered/Not Resolved]

NARRATIVE: CASE EVENT DATE: 20220530
